FAERS Safety Report 5154757-5 (Version None)
Quarter: 2006Q4

REPORT INFORMATION
  Report Type: 
  Country: None (occurrence: None)
  Receive Date: 20061121
  Receipt Date: 20061018
  Transmission Date: 20070319
  Serious: Yes (Life-Threatening, Hospitalization, Other)
  Sender: FDA-Public Use
  Company Number: PT-JNJFOC-20061000075

PATIENT
  Age: 34 Year
  Sex: Female

DRUGS (7)
  1. REMICADE [Suspect]
     Indication: COLITIS
     Route: 042
  2. PREDNISONE TAB [Concomitant]
     Indication: INFLAMMATORY BOWEL DISEASE
     Route: 048
  3. AZATHIOPRINE [Concomitant]
     Dosage: ROUTE: ORAL (PO)
  4. AZATHIOPRINE [Concomitant]
     Dosage: ^DOSE 1.0-2.4 MG/KG/DAY^
  5. AZATHIOPRINE [Concomitant]
     Indication: INFLAMMATORY BOWEL DISEASE
     Dosage: ^DOSE 1.0-2.4 MG/KG/DAY^
  6. MYCOPHENOLATE MOFETIL [Concomitant]
  7. CORTICOIDS [Concomitant]

REACTIONS (1)
  - B-CELL LYMPHOMA [None]
